FAERS Safety Report 17766031 (Version 1)
Quarter: 2020Q2

REPORT INFORMATION
  Report Type: Spontaneous
  Country: US (occurrence: US)
  Receive Date: 20200511
  Receipt Date: 20200511
  Transmission Date: 20200714
  Serious: Yes (Hospitalization)
  Sender: FDA-Public Use
  Company Number: None

PATIENT
  Age: 53 Year
  Sex: Male

DRUGS (6)
  1. PREDNISONE. [Concomitant]
     Active Substance: PREDNISONE
  2. ALBUTEROL. [Concomitant]
     Active Substance: ALBUTEROL
  3. OXYCODONE AND ACETAMINOPHEN [Concomitant]
     Active Substance: ACETAMINOPHEN\OXYCODONE HYDROCHLORIDE
  4. HUMIRA [Suspect]
     Active Substance: ADALIMUMAB
     Indication: COLITIS ULCERATIVE
     Dosage: ?          OTHER FREQUENCY:EVERY OTHER WEEK;?
     Route: 058
     Dates: start: 20200225
  5. ACYCLOVIR. [Concomitant]
     Active Substance: ACYCLOVIR
  6. AMLOD/BENAZP [Concomitant]

REACTIONS (2)
  - Abdominal pain [None]
  - Condition aggravated [None]

NARRATIVE: CASE EVENT DATE: 20200501
